FAERS Safety Report 8221546-4 (Version None)
Quarter: 2012Q1

REPORT INFORMATION
  Report Type: 
  Country: None (occurrence: None)
  Receive Date: 20120320
  Receipt Date: 20120307
  Transmission Date: 20120608
  Serious: No
  Sender: FDA-Public Use
  Company Number: US-B.I. PHARMACEUTICALS,INC./RIDGEFIELD-2012-BP-04319BP

PATIENT
  Age: 77 Year
  Sex: Male

DRUGS (2)
  1. FINASTERIDE [Suspect]
  2. FLOMAX [Suspect]
     Indication: BENIGN PROSTATIC HYPERPLASIA

REACTIONS (1)
  - BREAST ENLARGEMENT [None]
